FAERS Safety Report 6770890-6 (Version None)
Quarter: 2010Q2

REPORT INFORMATION
  Report Type: 
  Country: None (occurrence: None)
  Receive Date: 20100615
  Receipt Date: 20100607
  Transmission Date: 20101027
  Serious: Yes (Life-Threatening, Hospitalization)
  Sender: FDA-Public Use
  Company Number: JP-AMGEN-US399040

PATIENT
  Age: 73 Year
  Sex: Male

DRUGS (6)
  1. ENBREL [Suspect]
     Indication: RHEUMATOID ARTHRITIS
     Dosage: 25 MG LYOPHILIZED 25 MG 2 X PER WEEK
     Route: 058
  2. ENBREL [Suspect]
     Dosage: 25 MG SOLUTION 2X PER WEEK
     Route: 058
     Dates: end: 20100101
  3. ARAVA [Suspect]
     Indication: RHEUMATOID ARTHRITIS
     Route: 048
     Dates: end: 20100210
  4. PREDNISOLONE [Suspect]
     Indication: RHEUMATOID ARTHRITIS
     Route: 048
  5. BLOPRESS [Concomitant]
     Route: 048
     Dates: end: 20100209
  6. OPALMON [Concomitant]
     Route: 048
     Dates: end: 20100209

REACTIONS (5)
  - ARTHRITIS BACTERIAL [None]
  - DISSEMINATED INTRAVASCULAR COAGULATION [None]
  - PSOAS ABSCESS [None]
  - SEPSIS [None]
  - STAPHYLOCOCCAL INFECTION [None]
